FAERS Safety Report 7581698-6 (Version None)
Quarter: 2011Q2

REPORT INFORMATION
  Report Type: 
  Country: None (occurrence: None)
  Receive Date: 20110629
  Receipt Date: 20110624
  Transmission Date: 20111010
  Serious: Yes (Hospitalization)
  Sender: FDA-Public Use
  Company Number: ES-PFIZER INC-2011142478

PATIENT
  Age: 70 Year
  Sex: Female
  Weight: 82 kg

DRUGS (4)
  1. ALPRAZOLAM [Suspect]
     Indication: NERVOUSNESS
     Dosage: UNK
     Dates: end: 20110531
  2. EPOETIN ALFA [Concomitant]
  3. DEXAMETHASONE [Suspect]
     Indication: MULTIPLE MYELOMA
     Dosage: 160 MG, MONTHLY
     Dates: start: 20110117
  4. VELCADE [Suspect]
     Indication: MULTIPLE MYELOMA
     Dosage: 1 MG/M2, MONTHLY
     Route: 042
     Dates: start: 20110117

REACTIONS (1)
  - TRAUMATIC BRAIN INJURY [None]
